FAERS Safety Report 6846578-X (Version None)
Quarter: 2010Q3

REPORT INFORMATION
  Report Type: 
  Country: None (occurrence: None)
  Receive Date: 20100712
  Receipt Date: 20100701
  Transmission Date: 20110219
  Serious: Yes (Hospitalization)
  Sender: FDA-Public Use
  Company Number: 2010US001761

PATIENT
  Age: 75 Year
  Sex: Male

DRUGS (2)
  1. VESICARE [Suspect]
     Indication: HYPERTONIC BLADDER
     Dosage: 10 MG, UQD/QD, ORAL
     Route: 048
     Dates: start: 20080205
  2. DESMOPRESSION (DESMOPRESSION) [Concomitant]

REACTIONS (3)
  - ASTHENIA [None]
  - BLOOD SODIUM DECREASED [None]
  - NOCTURIA [None]
